FAERS Safety Report 19419513 (Version 6)
Quarter: 2022Q1

REPORT INFORMATION
  Report Type: Report from Study
  Country: BR (occurrence: BR)
  Receive Date: 20210615
  Receipt Date: 20220328
  Transmission Date: 20220423
  Serious: Yes (Other)
  Sender: FDA-Public Use
  Company Number: NVSC2021BR132596

PATIENT
  Sex: Female

DRUGS (8)
  1. KISQALI [Suspect]
     Active Substance: RIBOCICLIB
     Indication: Breast cancer metastatic
     Dosage: UNK QD (IN USE, 3 TABLETS, AROUND 27 APR 2021)
     Route: 065
  2. KISQALI [Suspect]
     Active Substance: RIBOCICLIB
     Dosage: 1 DOSAGE FORM (AFTER 1 WEEK OF START DATE)
     Route: 065
  3. KISQALI [Suspect]
     Active Substance: RIBOCICLIB
     Dosage: 2 DOSAGE FORM (AFTER 2 WEEKS OF START DATE)
     Route: 065
  4. KISQALI [Suspect]
     Active Substance: RIBOCICLIB
     Dosage: 3 DF, QD
     Route: 065
     Dates: start: 20210427
  5. KISQALI [Suspect]
     Active Substance: RIBOCICLIB
     Dosage: 3 TABLETS
     Route: 065
  6. VILDAGLIPTIN [Suspect]
     Active Substance: VILDAGLIPTIN
     Indication: Diabetes mellitus
     Dosage: 50 MG (IN USE)
     Route: 065
  7. LETROZOLE [Concomitant]
     Active Substance: LETROZOLE
     Indication: Product used for unknown indication
     Dosage: UNK
     Route: 065
  8. CALCIUM [Concomitant]
     Active Substance: CALCIUM
     Indication: Product used for unknown indication
     Dosage: UNK (IN USE)
     Route: 065

REACTIONS (31)
  - Decreased immune responsiveness [Not Recovered/Not Resolved]
  - Syncope [Unknown]
  - Cataract [Unknown]
  - Palpitations [Not Recovered/Not Resolved]
  - Illness [Unknown]
  - Eye pruritus [Recovering/Resolving]
  - Pruritus [Unknown]
  - Headache [Not Recovered/Not Resolved]
  - Asthenia [Not Recovered/Not Resolved]
  - Dizziness [Not Recovered/Not Resolved]
  - Nausea [Unknown]
  - Taste disorder [Unknown]
  - Hiccups [Unknown]
  - Discouragement [Unknown]
  - Tongue discolouration [Unknown]
  - Sluggishness [Unknown]
  - Feeling abnormal [Unknown]
  - Insomnia [Unknown]
  - Malaise [Not Recovered/Not Resolved]
  - Skin haemorrhage [Unknown]
  - Somnolence [Unknown]
  - Hypersensitivity [Unknown]
  - Pain [Recovering/Resolving]
  - Alopecia [Unknown]
  - Dry skin [Unknown]
  - Secretion discharge [Not Recovered/Not Resolved]
  - Burning sensation [Unknown]
  - Muscular weakness [Not Recovered/Not Resolved]
  - Abdominal pain upper [Not Recovered/Not Resolved]
  - Vomiting [Not Recovered/Not Resolved]
  - Rash [Unknown]

NARRATIVE: CASE EVENT DATE: 20210501
